FAERS Safety Report 22650049 (Version 1)
Quarter: 2023Q2

REPORT INFORMATION
  Report Type: Spontaneous
  Country: US (occurrence: None)
  Receive Date: 20230627
  Receipt Date: 20230627
  Transmission Date: 20230721
  Serious: No
  Sender: FDA-Public Use
  Company Number: None

PATIENT

DRUGS (2)
  1. METHYLPREDNISOLONE SODIUM SUCCINATE [Suspect]
     Active Substance: METHYLPREDNISOLONE SODIUM SUCCINATE
  2. EPIPEN [Suspect]
     Active Substance: EPINEPHRINE

REACTIONS (4)
  - Documented hypersensitivity to administered product [None]
  - Product formulation issue [None]
  - Anaphylactic reaction [None]
  - Contraindicated product administered [None]
